FAERS Safety Report 6357170-8 (Version None)
Quarter: 2009Q3

REPORT INFORMATION
  Report Type: 
  Country: None (occurrence: None)
  Receive Date: 20090911
  Receipt Date: 20090827
  Transmission Date: 20100115
  Serious: Yes (Hospitalization)
  Sender: FDA-Public Use
  Company Number: 8051125

PATIENT
  Age: 28 Year
  Sex: Female

DRUGS (5)
  1. KEPPRA [Suspect]
     Indication: CONVULSION
     Dosage: 2000 MG
     Dates: end: 20081121
  2. KEPPRA [Suspect]
     Indication: CONVULSION
     Dosage: 3000 MG
     Dates: start: 20081122, end: 20090609
  3. KEPPRA [Suspect]
     Indication: CONVULSION
     Dosage: 4000 MG
     Dates: start: 20090610
  4. VITAMIN TAB [Concomitant]
  5. FOLIC ACID [Concomitant]

REACTIONS (6)
  - CAESAREAN SECTION [None]
  - CONVULSION [None]
  - DRUG EXPOSURE DURING PREGNANCY [None]
  - GESTATIONAL DIABETES [None]
  - PREGNANCY [None]
  - THROMBOCYTOPENIA [None]
